FAERS Safety Report 11235536 (Version 1)
Quarter: 2015Q3

REPORT INFORMATION
  Report Type: Report from Study
  Country: JP (occurrence: JP)
  Receive Date: 20150702
  Receipt Date: 20150702
  Transmission Date: 20151125
  Serious: Yes (Death, Other)
  Sender: FDA-Public Use
  Company Number: JP-ALEXION-A201502377

PATIENT

DRUGS (1)
  1. SOLIRIS [Suspect]
     Active Substance: ECULIZUMAB
     Indication: HAEMOLYTIC URAEMIC SYNDROME
     Dosage: 900 MG, QW
     Route: 042
     Dates: start: 20150320, end: 20150410

REACTIONS (5)
  - Drug ineffective [Unknown]
  - Epstein-Barr virus infection [Fatal]
  - Condition aggravated [Fatal]
  - Posterior reversible encephalopathy syndrome [Unknown]
  - Cytokine storm [Fatal]

NARRATIVE: CASE EVENT DATE: 201505
